FAERS Safety Report 6136147-1 (Version None)
Quarter: 2009Q1

REPORT INFORMATION
  Report Type: 
  Country: None (occurrence: None)
  Receive Date: 20090330
  Receipt Date: 20090324
  Transmission Date: 20090719
  Serious: Yes (Hospitalization, Other)
  Sender: FDA-Public Use
  Company Number: US-AMGEN-KDL340140

PATIENT
  Sex: Female
  Weight: 86.3 kg

DRUGS (5)
  1. PROCRIT [Suspect]
     Indication: DIALYSIS
     Route: 058
     Dates: start: 20090101
  2. OMEPRAZOLE [Concomitant]
  3. SPIRIVA [Concomitant]
  4. VICODIN [Concomitant]
  5. LISINOPRIL [Concomitant]

REACTIONS (6)
  - BLOOD POTASSIUM INCREASED [None]
  - HERPES ZOSTER [None]
  - PAIN IN EXTREMITY [None]
  - RENAL FAILURE ACUTE [None]
  - STENT PLACEMENT [None]
  - SURGERY [None]
